FAERS Safety Report 21380551 (Version 6)
Quarter: 2022Q4

REPORT INFORMATION
  Report Type: Spontaneous
  Country: US (occurrence: US)
  Receive Date: 20220927
  Receipt Date: 20221107
  Transmission Date: 20230112
  Serious: No
  Sender: FDA-Public Use
  Company Number: US-PFIZER INC-PV202200056750

PATIENT
  Age: 43 Year
  Sex: Female

DRUGS (1)
  1. DEPO-PROVERA [Suspect]
     Active Substance: MEDROXYPROGESTERONE ACETATE
     Indication: Endometriosis
     Dosage: 104 MG, PREFILLED SYRINGE

REACTIONS (7)
  - Drug dose omission by device [Unknown]
  - Product administration error [Unknown]
  - Device defective [Unknown]
  - Device occlusion [Unknown]
  - Device issue [Unknown]
  - Device use issue [Unknown]
  - Underdose [Unknown]
